FAERS Safety Report 4446150-5 (Version None)
Quarter: 2004Q3

REPORT INFORMATION
  Report Type: 
  Country: None (occurrence: None)
  Receive Date: 20040907
  Receipt Date: 20040826
  Transmission Date: 20050211
  Serious: Yes (Hospitalization)
  Sender: FDA-Public Use
  Company Number: RO-ROCHE-378705

PATIENT
  Age: 53 Year
  Sex: Female
  Weight: 72 kg

DRUGS (7)
  1. COPEGUS [Suspect]
     Route: 048
     Dates: start: 20040209, end: 20040305
  2. COPEGUS [Suspect]
     Route: 048
     Dates: start: 20040306, end: 20040320
  3. COPEGUS [Suspect]
     Route: 048
     Dates: start: 20040321, end: 20040622
  4. COPEGUS [Suspect]
     Route: 048
     Dates: start: 20040702, end: 20040811
  5. COPEGUS [Suspect]
     Route: 048
     Dates: start: 20040812, end: 20040816
  6. COPEGUS [Suspect]
     Route: 048
     Dates: start: 20040817
  7. PEGASYS [Concomitant]
     Route: 058
     Dates: start: 20040209

REACTIONS (2)
  - GENERALISED OEDEMA [None]
  - HAEMOGLOBIN DECREASED [None]
